FAERS Safety Report 9695403 (Version 1)
Quarter: 2013Q4

REPORT INFORMATION
  Report Type: Spontaneous
  Country: US (occurrence: US)
  Receive Date: 20131119
  Receipt Date: 20131119
  Transmission Date: 20140711
  Serious: No
  Sender: FDA-Public Use
  Company Number: US-BAYER-2013-141335

PATIENT
  Age: 57 Year
  Sex: Male

DRUGS (3)
  1. MAGNEVIST [Suspect]
     Indication: NUCLEAR MAGNETIC RESONANCE IMAGING BRAIN
     Dosage: 15 ML, ONCE
     Dates: start: 20131118
  2. MAGNEVIST [Suspect]
     Indication: HEADACHE
  3. MAGNEVIST [Suspect]
     Indication: DIZZINESS

REACTIONS (3)
  - Nausea [Unknown]
  - Flushing [Unknown]
  - Nasal congestion [Unknown]
